FAERS Safety Report 8294061-X (Version None)
Quarter: 2012Q2

REPORT INFORMATION
  Report Type: 
  Country: None (occurrence: None)
  Receive Date: 20120418
  Receipt Date: 20120409
  Transmission Date: 20120825
  Serious: Yes (Other)
  Sender: FDA-Public Use
  Company Number: US-US-EMD SERONO, INC.-7124958

PATIENT
  Sex: Female

DRUGS (1)
  1. REBIF [Suspect]
     Indication: PRODUCT USED FOR UNKNOWN INDICATION
     Route: 058
     Dates: start: 20110607

REACTIONS (6)
  - RENAL DISORDER [None]
  - FAECAL INCONTINENCE [None]
  - OEDEMA PERIPHERAL [None]
  - FALL [None]
  - EYE DISORDER [None]
  - SKIN DISCOLOURATION [None]
